FAERS Safety Report 4576096-3 (Version None)
Quarter: 2005Q1

REPORT INFORMATION
  Report Type: 
  Country: None (occurrence: None)
  Receive Date: 20050201
  Receipt Date: 20050201
  Transmission Date: 20050727
  Serious: Yes (Life-Threatening, Hospitalization)
  Sender: FDA-Public Use
  Company Number: None

PATIENT
  Sex: Male
  Weight: 58.9676 kg

DRUGS (9)
  1. OXALIPLATIN     SANOFI [Suspect]
     Indication: COLORECTAL CANCER METASTATIC
     Dosage: 100MG   EVERY 2 WEEKS   INTRAVENOU
     Route: 042
     Dates: start: 20040301, end: 20050124
  2. PROSCAR [Concomitant]
  3. NEXIUM [Concomitant]
  4. OXYCONTIN [Concomitant]
  5. COMPAZINE [Concomitant]
  6. ATARAX [Concomitant]
  7. BENADRYL [Concomitant]
  8. RESTORIL [Concomitant]
  9. ANZEMENT [Concomitant]

REACTIONS (5)
  - EPISTAXIS [None]
  - GINGIVAL BLEEDING [None]
  - HAEMOGLOBIN DECREASED [None]
  - HAEMOPTYSIS [None]
  - PLATELET COUNT DECREASED [None]
